FAERS Safety Report 23094679 (Version 4)
Quarter: 2024Q1

REPORT INFORMATION
  Report Type: Report from Study
  Country: CL (occurrence: CL)
  Receive Date: 20231023
  Receipt Date: 20240316
  Transmission Date: 20240410
  Serious: Yes (Other)
  Sender: FDA-Public Use
  Company Number: CL-002147023-NVSC2023CL138214

PATIENT
  Age: 58 Year
  Sex: Female

DRUGS (6)
  1. KISQALI [Suspect]
     Active Substance: RIBOCICLIB
     Indication: Breast cancer
     Dosage: 600 MG, QD
     Route: 048
     Dates: start: 20230610
  2. KISQALI [Suspect]
     Active Substance: RIBOCICLIB
     Dosage: 600 MG, QD
     Route: 048
     Dates: start: 20230610
  3. KISQALI [Suspect]
     Active Substance: RIBOCICLIB
     Dosage: 600 MG, QD
     Route: 048
     Dates: start: 20230610
  4. KISQALI [Suspect]
     Active Substance: RIBOCICLIB
     Dosage: 600 MG, QD, 3 TABLETS
     Route: 048
     Dates: start: 20230610
  5. KISQALI [Suspect]
     Active Substance: RIBOCICLIB
     Dosage: 600 MG, QD, 3 TABLETS
     Route: 048
     Dates: start: 20240102
  6. KISQALI [Suspect]
     Active Substance: RIBOCICLIB
     Dosage: UNK UNK, CYCLIC
     Route: 065
     Dates: start: 20240308

REACTIONS (8)
  - Colitis [Unknown]
  - Rectal haemorrhage [Unknown]
  - Platelet count decreased [Recovered/Resolved]
  - Hypersensitivity [Unknown]
  - Gait inability [Recovered/Resolved]
  - Nasal congestion [Unknown]
  - Dyspepsia [Unknown]
  - Abdominal pain upper [Unknown]
